FAERS Safety Report 10256516 (Version 1)
Quarter: 2014Q2

REPORT INFORMATION
  Report Type: Spontaneous
  Country: US (occurrence: US)
  Receive Date: 20140624
  Receipt Date: 20140624
  Transmission Date: 20141212
  Serious: No
  Sender: FDA-Public Use
  Company Number: US-ZOGENIX, INC.-2012ZX000246

PATIENT
  Age: 36 Year
  Sex: Male
  Weight: 72.64 kg

DRUGS (2)
  1. SUMAVEL DOSEPRO [Suspect]
     Indication: CLUSTER HEADACHE
     Dates: start: 201109
  2. SUMAVEL DOSEPRO [Suspect]
     Dates: start: 20120709, end: 20120709

REACTIONS (3)
  - Injection site pain [Recovered/Resolved]
  - Device malfunction [Recovered/Resolved]
  - Accidental exposure to product [Recovered/Resolved]
